FAERS Safety Report 22634714 (Version 1)
Quarter: 2023Q2

REPORT INFORMATION
  Report Type: Other
  Country: GB (occurrence: GB)
  Receive Date: 20230623
  Receipt Date: 20230623
  Transmission Date: 20230722
  Serious: Yes (Other)
  Sender: FDA-Public Use
  Company Number: GB-GLENMARK PHARMACEUTICALS-2023GMK082655

PATIENT

DRUGS (3)
  1. ZONISAMIDE [Interacting]
     Active Substance: ZONISAMIDE
     Indication: Product used for unknown indication
     Dosage: UNK
     Route: 065
  2. CLOZARIL [Interacting]
     Active Substance: CLOZAPINE
     Indication: Product used for unknown indication
     Dosage: 300 MILLIGRAM, QD
     Route: 065
  3. CLOZARIL [Interacting]
     Active Substance: CLOZAPINE
     Dosage: 200 MILLIGRAM, QD
     Route: 065

REACTIONS (22)
  - Viral infection [Unknown]
  - Nasopharyngitis [Unknown]
  - Ear pain [Unknown]
  - Tonsillar inflammation [Unknown]
  - Tonsillar exudate [Unknown]
  - Drug interaction [Unknown]
  - Dehydration [Unknown]
  - Oropharyngeal pain [Unknown]
  - Chest pain [Unknown]
  - Palpitations [Unknown]
  - Headache [Unknown]
  - Malaise [Unknown]
  - Dizziness [Unknown]
  - Eye pain [Unknown]
  - Fatigue [Unknown]
  - Agranulocytosis [Unknown]
  - Viral pharyngitis [Unknown]
  - Condition aggravated [Unknown]
  - Illness [Unknown]
  - Pharyngitis streptococcal [Unknown]
  - Myoclonic dystonia [Unknown]
  - Tachycardia [Unknown]
